FAERS Safety Report 4645620-4 (Version None)
Quarter: 2005Q2

REPORT INFORMATION
  Report Type: 
  Country: None (occurrence: None)
  Receive Date: 20050331
  Receipt Date: 20041210
  Transmission Date: 20051028
  Serious: No
  Sender: FDA-Public Use
  Company Number: 04P-163-0282908-00

PATIENT
  Age: 86 Year
  Sex: Female
  Weight: 45.3597 kg

DRUGS (5)
  1. HUMIRA [Suspect]
     Indication: RHEUMATOID ARTHRITIS
     Dosage: 40 MG, 1 IN 2 WK, SUBCUTANEOUS
     Route: 058
     Dates: start: 20040601
  2. ATCAND [Concomitant]
  3. METHOTREXATE SODIUM [Concomitant]
  4. VICODIN [Concomitant]
  5. FOLIC ACID [Concomitant]

REACTIONS (1)
  - PARAESTHESIA [None]
